FAERS Safety Report 18072654 (Version 1)
Quarter: 2020Q3

REPORT INFORMATION
  Report Type: Spontaneous
  Country: US (occurrence: US)
  Receive Date: 20200727
  Receipt Date: 20200727
  Transmission Date: 20201103
  Serious: Yes (Life-Threatening, Hospitalization)
  Sender: FDA-Public Use
  Company Number: None

PATIENT
  Age: 81 Year
  Sex: Male
  Weight: 79.38 kg

DRUGS (2)
  1. HYDROCHLOROTHIAZIDE(HYDROCHLOROTHIAZIDE 25MG TAB [Suspect]
     Active Substance: HYDROCHLOROTHIAZIDE
     Indication: HYPERTENSION
     Route: 048
     Dates: start: 20050321, end: 20200623
  2. HYDROCHLOROTHIAZIDE(HYDROCHLOROTHIAZIDE 25MG TAB [Suspect]
     Active Substance: HYDROCHLOROTHIAZIDE
     Indication: CARDIAC FAILURE CONGESTIVE
     Route: 048
     Dates: start: 20050321, end: 20200623

REACTIONS (2)
  - Hypervolaemia [None]
  - Hyponatraemia [None]

NARRATIVE: CASE EVENT DATE: 20200623
